FAERS Safety Report 9849741 (Version 1)
Quarter: 2014Q1

REPORT INFORMATION
  Report Type: Spontaneous
  Country: US (occurrence: US)
  Receive Date: 20140128
  Receipt Date: 20140128
  Transmission Date: 20141002
  Serious: No
  Sender: FDA-Public Use
  Company Number: US-PFIZER INC-2014023136

PATIENT
  Age: 73 Year
  Sex: Female

DRUGS (16)
  1. NORVASC [Suspect]
     Dosage: UNK
  2. CLARITHROMYCIN [Suspect]
     Dosage: UNK
  3. NYSTATIN [Suspect]
     Dosage: UNK
  4. PREDNISONE [Suspect]
     Dosage: UNK
  5. NIFEDIPINE [Suspect]
     Dosage: UNK
  6. HYDROCHLOROTHIAZIDE [Suspect]
     Dosage: UNK
  7. CIPROFLOXACIN [Suspect]
     Dosage: UNK
  8. INDAPAMIDE [Suspect]
     Dosage: UNK
  9. FAMVIR [Suspect]
     Dosage: UNK
  10. CLONIDINE [Suspect]
     Dosage: UNK
  11. BACTRIM [Suspect]
     Dosage: UNK
  12. CODEINE [Suspect]
     Dosage: UNK
  13. AVALIDE [Suspect]
     Dosage: UNK
  14. BYSTOLIC [Suspect]
     Dosage: UNK
  15. KEFLEX [Suspect]
     Dosage: UNK
  16. IODINE [Suspect]
     Dosage: UNK

REACTIONS (1)
  - Drug hypersensitivity [Unknown]
